FAERS Safety Report 20421517 (Version 1)
Quarter: 2022Q1

REPORT INFORMATION
  Report Type: Spontaneous
  Country: JP (occurrence: JP)
  Receive Date: 20220203
  Receipt Date: 20220203
  Transmission Date: 20220423
  Serious: Yes (Death, Other)
  Sender: FDA-Public Use
  Company Number: JP-ELI_LILLY_AND_COMPANY-JP202202000480

PATIENT

DRUGS (2)
  1. ADCIRCA [Suspect]
     Active Substance: TADALAFIL
     Indication: Prenatal care
     Dosage: UNK UNK, UNKNOWN
     Route: 064
  2. ADCIRCA [Suspect]
     Active Substance: TADALAFIL
     Indication: Prenatal care
     Dosage: UNK UNK, UNKNOWN
     Route: 064

REACTIONS (4)
  - Death neonatal [Fatal]
  - Low birth weight baby [Unknown]
  - Premature baby [Unknown]
  - Foetal exposure during pregnancy [Recovered/Resolved]
